FAERS Safety Report 10729022 (Version 2)
Quarter: 2015Q1

REPORT INFORMATION
  Report Type: Spontaneous
  Country: US (occurrence: US)
  Receive Date: 20150122
  Receipt Date: 20150212
  Transmission Date: 20150721
  Serious: Yes (Other)
  Sender: FDA-Public Use
  Company Number: US-PFIZER INC-2015024492

PATIENT
  Age: 12 Year
  Sex: Male

DRUGS (1)
  1. ZOLOFT [Suspect]
     Active Substance: SERTRALINE HYDROCHLORIDE
     Indication: OPPOSITIONAL DEFIANT DISORDER
     Dosage: 75 MG, UNK

REACTIONS (4)
  - Abnormal behaviour [Unknown]
  - Decreased appetite [Unknown]
  - Nausea [Unknown]
  - Suicidal ideation [Unknown]
